FAERS Safety Report 9551915 (Version 1)
Quarter: 2013Q3

REPORT INFORMATION
  Report Type: Spontaneous
  Country: US (occurrence: US)
  Receive Date: 20130925
  Receipt Date: 20130925
  Transmission Date: 20140515
  Serious: No
  Sender: FDA-Public Use
  Company Number: US-B.I. PHARMACEUTICALS,INC./RIDGEFIELD-2013-BI-29300BP

PATIENT
  Age: 56 Year
  Sex: Female
  Weight: 95 kg

DRUGS (3)
  1. COMBIVENT [Suspect]
     Indication: ASTHMA
     Dosage: STRENGTH: 20 MCG / 100 MCG; DAILY DOSE: 80 MCG/400MCG
     Route: 055
     Dates: start: 20130807
  2. LISINOPRIL [Concomitant]
     Indication: HYPERTENSION
     Dosage: 25 MG
     Route: 048
     Dates: start: 2010
  3. METOPROLOL [Concomitant]
     Indication: HYPERTENSION
     Dosage: 100 MG
     Route: 048
     Dates: start: 2013

REACTIONS (2)
  - Asthma [Not Recovered/Not Resolved]
  - Off label use [Not Recovered/Not Resolved]
